FAERS Safety Report 4713509-8 (Version None)
Quarter: 2005Q3

REPORT INFORMATION
  Report Type: 
  Country: None (occurrence: None)
  Receive Date: 20050707
  Receipt Date: 20050531
  Transmission Date: 20060218
  Serious: Yes (Other)
  Sender: FDA-Public Use
  Company Number: 2005BH000068

PATIENT
  Age: 67 Year

DRUGS (1)
  1. GAMMAGARD S/D [Suspect]
     Indication: IMMUNODEFICIENCY

REACTIONS (2)
  - CHRONIC INFLAMMATORY DEMYELINATING POLYRADICULONEUROPATHY [None]
  - MYOCARDIAL INFARCTION [None]
